FAERS Safety Report 24843401 (Version 1)
Quarter: 2025Q1

REPORT INFORMATION
  Report Type: Spontaneous
  Country: BR (occurrence: BR)
  Receive Date: 20250115
  Receipt Date: 20250115
  Transmission Date: 20250409
  Serious: No
  Sender: UCB
  Company Number: BR-UCBSA-2024067745

PATIENT
  Sex: Female

DRUGS (2)
  1. NEUPRO [Suspect]
     Active Substance: ROTIGOTINE
     Indication: Parkinson^s disease
  2. NEUPRO [Suspect]
     Active Substance: ROTIGOTINE

REACTIONS (1)
  - Product adhesion issue [Unknown]
